FAERS Safety Report 21848404 (Version 2)
Quarter: 2023Q2

REPORT INFORMATION
  Report Type: Spontaneous
  Country: JP (occurrence: JP)
  Receive Date: 20230111
  Receipt Date: 20230405
  Transmission Date: 20230722
  Serious: No
  Sender: FDA-Public Use
  Company Number: JP-CHEMOCENTRYX, INC.-2022JPCCXI0634

PATIENT

DRUGS (12)
  1. TAVNEOS [Suspect]
     Active Substance: AVACOPAN
     Indication: Granulomatosis with polyangiitis
     Dosage: 60 MG (DAILY)
     Route: 048
     Dates: start: 20220927, end: 20221101
  2. PREDNISOLONE [Concomitant]
     Active Substance: PREDNISOLONE
     Indication: Granulomatosis with polyangiitis
     Dosage: 6 MG, QD
     Route: 065
  3. PREDNISOLONE [Concomitant]
     Active Substance: PREDNISOLONE
     Dosage: 15 MG, QD
     Route: 065
     Dates: start: 20220316
  4. PREDNISOLONE [Concomitant]
     Active Substance: PREDNISOLONE
     Dosage: 6 MG, QD
     Route: 065
     Dates: start: 20220628, end: 20221207
  5. MIZORIBINE [Concomitant]
     Active Substance: MIZORIBINE
     Indication: Granulomatosis with polyangiitis
     Dosage: 25 MG, QD
     Route: 048
     Dates: start: 20220412
  6. MIZORIBINE [Concomitant]
     Active Substance: MIZORIBINE
     Dosage: 50 MG, QD
     Route: 048
     Dates: start: 20220517, end: 20221209
  7. GASTER [Concomitant]
     Active Substance: FAMOTIDINE
     Indication: Product used for unknown indication
     Route: 048
  8. ELDECALCITOL [Concomitant]
     Active Substance: ELDECALCITOL
     Indication: Product used for unknown indication
     Route: 048
  9. SULFAMETHOXAZOLE\TRIMETHOPRIM [Concomitant]
     Active Substance: SULFAMETHOXAZOLE\TRIMETHOPRIM
     Indication: Product used for unknown indication
     Route: 048
  10. ONGLYZA [SAXAGLIPTIN MONOHYDRATE] [Concomitant]
     Indication: Product used for unknown indication
     Route: 048
  11. ROSUVASTATIN CALCIUM [Concomitant]
     Active Substance: ROSUVASTATIN CALCIUM
     Indication: Product used for unknown indication
     Route: 048
  12. ACETAMINOPHEN\TRAMADOL HYDROCHLORIDE [Concomitant]
     Active Substance: ACETAMINOPHEN\TRAMADOL HYDROCHLORIDE
     Indication: Product used for unknown indication
     Route: 048

REACTIONS (1)
  - Hepatic function abnormal [Recovered/Resolved]

NARRATIVE: CASE EVENT DATE: 20221101
